FAERS Safety Report 7276230-0 (Version None)
Quarter: 2011Q1

REPORT INFORMATION
  Report Type: 
  Country: None (occurrence: None)
  Receive Date: 20110204
  Receipt Date: 20110131
  Transmission Date: 20110831
  Serious: Yes (Death)
  Sender: FDA-Public Use
  Company Number: PHHY2011US08414

PATIENT
  Sex: Male

DRUGS (1)
  1. AFINITOR [Suspect]
     Indication: GASTROINTESTINAL CARCINOMA
     Dosage: 10 MG, DAILY
     Route: 048
     Dates: start: 20100820

REACTIONS (1)
  - DEATH [None]
